FAERS Safety Report 11322624 (Version 1)
Quarter: 2015Q3

REPORT INFORMATION
  Report Type: Spontaneous
  Country: US (occurrence: None)
  Receive Date: 20150729
  Receipt Date: 20150729
  Transmission Date: 20151125
  Serious: No
  Sender: FDA-Public Use
  Company Number: None

PATIENT
  Age: 78 Year
  Sex: Male
  Weight: 70.76 kg

DRUGS (17)
  1. MELOXICAM. [Concomitant]
     Active Substance: MELOXICAM
  2. ATVORSTATIN [Concomitant]
  3. FISH OIL [Concomitant]
     Active Substance: FISH OIL
  4. FETZIMA [Suspect]
     Active Substance: LEVOMILNACIPRAN HYDROCHLORIDE
     Indication: DEPRESSION
     Dosage: 20MG + 40MG CAPS?2 20MG/WEEK 7/40ML?5  40MG/1  WK2?1XDAY?BY MOUTH
     Route: 048
     Dates: start: 20150622, end: 20150623
  5. DIOVAN [Concomitant]
     Active Substance: VALSARTAN
  6. RESTASIS [Concomitant]
     Active Substance: CYCLOSPORINE
  7. SPIRIVA [Concomitant]
     Active Substance: TIOTROPIUM BROMIDE MONOHYDRATE
  8. DEXILAVS [Concomitant]
  9. CENTRUM [Concomitant]
     Active Substance: VITAMINS
  10. ADVAIR HFA [Concomitant]
     Active Substance: FLUTICASONE PROPIONATE\SALMETEROL XINAFOATE
  11. AMLODIPINE [Concomitant]
     Active Substance: AMLODIPINE BESYLATE
  12. CERTZINE [Concomitant]
  13. SIMTASATIN [Concomitant]
  14. METHIMAZOLE. [Concomitant]
     Active Substance: METHIMAZOLE
  15. CITRACAL [Concomitant]
     Active Substance: CALCIUM CITRATE
  16. VITAMIN C [Concomitant]
     Active Substance: ASCORBIC ACID
  17. VITAMIN E [Concomitant]
     Active Substance: .ALPHA.-TOCOPHEROL

REACTIONS (6)
  - Nausea [None]
  - Testicular pain [None]
  - Photophobia [None]
  - Groin pain [None]
  - Vomiting [None]
  - Urinary retention [None]

NARRATIVE: CASE EVENT DATE: 20150622
